FAERS Safety Report 12670813 (Version 1)
Quarter: 2016Q3

REPORT INFORMATION
  Report Type: Spontaneous
  Country: US (occurrence: US)
  Receive Date: 20160822
  Receipt Date: 20160822
  Transmission Date: 20161109
  Serious: No
  Sender: FDA-Public Use
  Company Number: US-JAZZ-2016-US-006060

PATIENT
  Sex: Female

DRUGS (28)
  1. PRILOSEC [Concomitant]
     Active Substance: OMEPRAZOLE MAGNESIUM
  2. LORAZEPAM. [Concomitant]
     Active Substance: LORAZEPAM
  3. MAGNESIUM GLUCONATE [Concomitant]
     Active Substance: MAGNESIUM GLUCONATE
  4. YAZ [Concomitant]
     Active Substance: DROSPIRENONE\ETHINYL ESTRADIOL
  5. XYREM [Suspect]
     Active Substance: SODIUM OXYBATE
     Dosage: 5 G, AS FIRST DOSE
     Route: 048
     Dates: start: 201309, end: 201510
  6. XYREM [Suspect]
     Active Substance: SODIUM OXYBATE
     Dosage: 4 G, AS SECOND DOSE
     Route: 048
     Dates: start: 201309, end: 201510
  7. PROVIGIL [Concomitant]
     Active Substance: MODAFINIL
  8. ZOLOFT [Concomitant]
     Active Substance: SERTRALINE HYDROCHLORIDE
  9. ZOLOFT [Concomitant]
     Active Substance: SERTRALINE HYDROCHLORIDE
  10. KLONOPIN [Concomitant]
     Active Substance: CLONAZEPAM
  11. PROVENTIL HFA [Concomitant]
     Active Substance: ALBUTEROL SULFATE
  12. MULTIVITAMINS [Concomitant]
     Active Substance: VITAMINS
  13. CHANTIX [Concomitant]
     Active Substance: VARENICLINE TARTRATE
  14. XYREM [Suspect]
     Active Substance: SODIUM OXYBATE
     Indication: NARCOLEPSY
     Dosage: 1.5 G, BID
     Route: 048
     Dates: start: 200906, end: 200906
  15. XYREM [Suspect]
     Active Substance: SODIUM OXYBATE
     Indication: CATAPLEXY
     Dosage: DOSE ADJUSTMENTS
     Route: 048
  16. PROVIGIL [Concomitant]
     Active Substance: MODAFINIL
  17. XYREM [Suspect]
     Active Substance: SODIUM OXYBATE
     Dosage: 4 G, AS SECOND DOSE
     Route: 048
     Dates: start: 201510
  18. POTASSIUM GLUCONATE [Concomitant]
     Active Substance: POTASSIUM GLUCONATE
  19. VITAMIN D [Concomitant]
     Active Substance: CHOLECALCIFEROL
  20. BENADRYL ALLERGY [Concomitant]
     Active Substance: DIPHENHYDRAMINE HYDROCHLORIDE
  21. DILAUDID [Concomitant]
     Active Substance: HYDROMORPHONE HYDROCHLORIDE
  22. MARIJUANA [Concomitant]
     Active Substance: CANNABIS SATIVA SUBSP. INDICA TOP
  23. CALCIUM [Concomitant]
     Active Substance: CALCIUM
  24. PERCOCET [Concomitant]
     Active Substance: ACETAMINOPHEN\OXYCODONE HYDROCHLORIDE
  25. XYREM [Suspect]
     Active Substance: SODIUM OXYBATE
     Dosage: 5.5 G, AS FIRST DOSE
     Route: 048
     Dates: start: 201510
  26. GABAPENTIN. [Concomitant]
     Active Substance: GABAPENTIN
  27. METFORMIN [Concomitant]
     Active Substance: METFORMIN HYDROCHLORIDE
  28. XANAX [Concomitant]
     Active Substance: ALPRAZOLAM

REACTIONS (1)
  - Insomnia [Not Recovered/Not Resolved]
